FAERS Safety Report 21676581 (Version 1)
Quarter: 2022Q4

REPORT INFORMATION
  Report Type: Report from Study
  Country: CA (occurrence: CA)
  Receive Date: 20221202
  Receipt Date: 20221202
  Transmission Date: 20230113
  Serious: Yes (Other)
  Sender: FDA-Public Use
  Company Number: CA-HLS-202202076

PATIENT
  Age: 55 Year
  Sex: Male

DRUGS (4)
  1. CLOZARIL [Suspect]
     Active Substance: CLOZAPINE
     Indication: Agitation
     Route: 048
     Dates: start: 20220906, end: 20221116
  2. CLOZARIL [Suspect]
     Active Substance: CLOZAPINE
     Indication: Posterior cortical atrophy
     Route: 048
     Dates: start: 20220906, end: 20221116
  3. HALDOL [Concomitant]
     Active Substance: HALOPERIDOL
     Indication: Agitation
     Dosage: 1 MG PRN ONLY FOR EXTREME AGITATION
     Route: 065
     Dates: start: 20220620
  4. GABAPENTIN [Concomitant]
     Active Substance: GABAPENTIN
     Indication: Product used for unknown indication
     Dosage: 600MG FOUR TIMES A DAY
     Route: 048
     Dates: start: 20220727

REACTIONS (5)
  - Agranulocytosis [Unknown]
  - Drug ineffective [Unknown]
  - Neutropenia [Unknown]
  - Off label use [Unknown]
  - Psychotic disorder [Not Recovered/Not Resolved]
